FAERS Safety Report 6943835 (Version 3)
Quarter: 2012Q4

REPORT INFORMATION
  Report Type: Report from Study
  Country: SE (occurrence: SE)
  Receive Date: 20090318
  Receipt Date: 20121107
  Transmission Date: 20130627
  Serious: Yes (Hospitalization)
  Sender: FDA-Public Use
  Company Number: SE-BAYER-200915992GPV

PATIENT
  Age: 41 Year
  Sex: Female

DRUGS (9)
  1. MIRENA [Suspect]
     Indication: CONTRACEPTION
     Dosage: UNK
     Route: 015
     Dates: start: 200203, end: 20070306
  2. PLACEBO [Suspect]
     Route: 060
     Dates: start: 20070306, end: 20070306
  3. LEVONORGESTREL [Suspect]
     Indication: CONTRACEPTION
     Route: 015
     Dates: start: 20070306
  4. CIPROFLOXACIN [Concomitant]
     Indication: PYELONEPHRITIS
  5. OMEPRAZOL [Concomitant]
     Indication: GASTRITIS
     Dosage: 20 mg (Daily Dose), QD, oral
     Route: 048
     Dates: start: 20071214
  6. FLAGYL [Concomitant]
     Indication: SINUSITIS
     Route: 048
     Dates: start: 20071010, end: 20071020
  7. FLAGYL [Concomitant]
     Indication: SINUSITIS
     Route: 048
     Dates: start: 20071214, end: 20071224
  8. KAVEPENIN [Concomitant]
     Indication: SINUSITIS
     Route: 048
     Dates: start: 20071214, end: 20071224
  9. FLAGYL [Concomitant]
     Route: 048
     Dates: start: 20071214, end: 20071224

REACTIONS (5)
  - Pyelonephritis [Recovered/Resolved]
  - Sepsis [Recovered/Resolved]
  - Pyrexia [Recovered/Resolved]
  - Abdominal pain [Recovered/Resolved]
  - Back pain [Recovered/Resolved]
